FAERS Safety Report 12784019 (Version 1)
Quarter: 2016Q3

REPORT INFORMATION
  Report Type: Spontaneous
  Country: GB (occurrence: GB)
  Receive Date: 20160927
  Receipt Date: 20160927
  Transmission Date: 20161109
  Serious: Yes (Hospitalization)
  Sender: FDA-Public Use
  Company Number: GB-GLAXOSMITHKLINE-GB2016137519

PATIENT
  Age: 27 Year
  Sex: Male
  Weight: 70.3 kg

DRUGS (2)
  1. MIRTAZAPINE. [Concomitant]
     Active Substance: MIRTAZAPINE
     Dosage: UNK
  2. ACICLOVIR [Suspect]
     Active Substance: ACYCLOVIR
     Indication: GENITAL HERPES
     Dosage: 400 MG, UNK
     Route: 048
     Dates: start: 20160909

REACTIONS (1)
  - Penile blister [Not Recovered/Not Resolved]

NARRATIVE: CASE EVENT DATE: 20160909
